FAERS Safety Report 10932728 (Version 2)
Quarter: 2015Q3

REPORT INFORMATION
  Report Type: Report from Study
  Country: BR (occurrence: BR)
  Receive Date: 20150320
  Receipt Date: 20150730
  Transmission Date: 20151125
  Serious: Yes (Disabling, Other)
  Sender: FDA-Public Use
  Company Number: BR-ROCHE-1534594

PATIENT
  Age: 77 Year
  Sex: Male
  Weight: 45 kg

DRUGS (1)
  1. MABTHERA [Suspect]
     Active Substance: RITUXIMAB
     Indication: RHEUMATOID ARTHRITIS
     Dosage: 100 MG/10 ML VIALS
     Route: 042
     Dates: start: 20090428, end: 20141205

REACTIONS (13)
  - Arthralgia [Unknown]
  - Bedridden [Not Recovered/Not Resolved]
  - Asthenia [Unknown]
  - Overdose [Unknown]
  - Unevaluable event [Not Recovered/Not Resolved]
  - Muscular weakness [Not Recovered/Not Resolved]
  - Peripheral swelling [Not Recovered/Not Resolved]
  - Pain in extremity [Unknown]
  - Asthenia [Not Recovered/Not Resolved]
  - Cardiovascular disorder [Not Recovered/Not Resolved]
  - Gait disturbance [Not Recovered/Not Resolved]
  - Dehydration [Not Recovered/Not Resolved]
  - Limb asymmetry [Not Recovered/Not Resolved]

NARRATIVE: CASE EVENT DATE: 20141205
